FAERS Safety Report 9371154 (Version 1)
Quarter: 2013Q2

REPORT INFORMATION
  Report Type: Spontaneous
  Country: US (occurrence: None)
  Receive Date: 20130626
  Receipt Date: 20130626
  Transmission Date: 20140414
  Serious: Yes (Other)
  Sender: FDA-Public Use
  Company Number: None

PATIENT
  Age: 70 Year
  Sex: Female
  Weight: 107.5 kg

DRUGS (1)
  1. NOVOLOG [Suspect]
     Indication: TYPE 2 DIABETES MELLITUS
     Dosage: 3 UNITS BEFORE LUNCH INJECTION
     Dates: start: 20130312, end: 20130412

REACTIONS (3)
  - Vomiting [None]
  - Dizziness [None]
  - Swelling [None]
